FAERS Safety Report 5951427-8 (Version None)
Quarter: 2008Q4

REPORT INFORMATION
  Report Type: 
  Country: None (occurrence: None)
  Receive Date: 20081111
  Receipt Date: 20081111
  Transmission Date: 20090506
  Serious: Yes (Other)
  Sender: FDA-Public Use
  Company Number: None

PATIENT
  Sex: Female
  Weight: 65.7716 kg

DRUGS (1)
  1. LEVAPAK NOT SURE [Suspect]
     Indication: LIMB INJURY
     Dosage: 1 5 DAYS PO
     Route: 048
     Dates: start: 20081102, end: 20081103

REACTIONS (5)
  - ANXIETY [None]
  - ARTHRALGIA [None]
  - INSOMNIA [None]
  - PANIC REACTION [None]
  - TINNITUS [None]
